FAERS Safety Report 23861830 (Version 1)
Quarter: 2024Q2

REPORT INFORMATION
  Report Type: Other
  Country: IN (occurrence: None)
  Receive Date: 20240516
  Receipt Date: 20240516
  Transmission Date: 20240716
  Serious: Yes (Death)
  Sender: FDA-Public Use
  Company Number: IN-ROCHE-3493836

PATIENT
  Age: 51 Year
  Sex: Female

DRUGS (1)
  1. TECENTRIQ [Suspect]
     Active Substance: ATEZOLIZUMAB
     Indication: Hepatocellular carcinoma
     Route: 041
     Dates: start: 20230920

REACTIONS (5)
  - Death [Fatal]
  - Thoracic haemorrhage [Unknown]
  - Vomiting [Unknown]
  - Diarrhoea [Unknown]
  - Blood bilirubin increased [Unknown]
